FAERS Safety Report 5748116-1 (Version None)
Quarter: 2008Q2

REPORT INFORMATION
  Report Type: 
  Country: None (occurrence: None)
  Receive Date: 20080521
  Receipt Date: 20080509
  Transmission Date: 20081010
  Serious: Yes (Other)
  Sender: FDA-Public Use
  Company Number: 100#03#2008-02637

PATIENT
  Age: 62 Year
  Sex: Female

DRUGS (2)
  1. CARBOPLATIN (CARBOPLATIN) [Suspect]
     Indication: DRUG USE FOR UNKNOWN INDICATION
     Dosage: 590 MG
  2. NAVELBINE [Suspect]
     Indication: BREAST CANCER
     Dosage: ORAL;  DURATION UNTIL ONSET: 3 CYCLES
     Route: 048

REACTIONS (1)
  - RETINAL DISORDER [None]
